FAERS Safety Report 6096192-1 (Version None)
Quarter: 2009Q1

REPORT INFORMATION
  Report Type: 
  Country: None (occurrence: None)
  Receive Date: 20090227
  Receipt Date: 20080929
  Transmission Date: 20090719
  Serious: Yes (Other)
  Sender: FDA-Public Use
  Company Number: A0749617A

PATIENT
  Age: 49 Year
  Sex: Male

DRUGS (5)
  1. LAMICTAL [Suspect]
     Indication: BIPOLAR DISORDER
     Dosage: 100MG PER DAY
     Route: 048
     Dates: start: 20080806
  2. VALTREX [Concomitant]
  3. CLARITIN [Concomitant]
  4. XANAX [Concomitant]
  5. DEPAKOTE [Concomitant]

REACTIONS (2)
  - AMNESIA [None]
  - MANIA [None]
